FAERS Safety Report 8174053-1 (Version None)
Quarter: 2012Q1

REPORT INFORMATION
  Report Type: 
  Country: None (occurrence: None)
  Receive Date: 20120229
  Receipt Date: 20120214
  Transmission Date: 20120608
  Serious: Yes (Hospitalization)
  Sender: FDA-Public Use
  Company Number: GB-WATSON-2012-02985

PATIENT
  Age: 28 Year
  Sex: Female
  Weight: 95 kg

DRUGS (10)
  1. FENTANYL CITRATE [Suspect]
     Indication: GENERAL ANAESTHESIA
     Route: 042
  2. CYCLIZINE [Suspect]
     Indication: GENERAL ANAESTHESIA
     Route: 042
  3. SUPRANE [Suspect]
     Indication: GENERAL ANAESTHESIA
     Dosage: UNK
     Route: 065
     Dates: start: 20111011
  4. REMIFENTANIL [Suspect]
     Indication: GENERAL ANAESTHESIA
     Route: 042
  5. ATRACURIUM BESYLATE [Suspect]
     Indication: GENERAL ANAESTHESIA
     Route: 065
  6. ONDANSETRON HCL [Suspect]
     Indication: GENERAL ANAESTHESIA
     Route: 042
  7. DEXAMETHASONE SODIUM PHOSPHATE [Suspect]
     Indication: GENERAL ANAESTHESIA
     Route: 042
  8. SCOPOLAMINE [Suspect]
     Indication: PRODUCT USED FOR UNKNOWN INDICATION
     Dosage: UNK
     Route: 042
     Dates: start: 20111010, end: 20111010
  9. MEPERIDINE HCL [Suspect]
     Indication: GENERAL ANAESTHESIA
     Dosage: UNK
     Route: 042
     Dates: start: 20111010, end: 20111010
  10. SUPRANE [Suspect]
     Indication: CHOLEDOCHOLITHOTOMY

REACTIONS (2)
  - LIVER FUNCTION TEST ABNORMAL [None]
  - PAIN [None]
